FAERS Safety Report 24447878 (Version 1)
Quarter: 2024Q4

REPORT INFORMATION
  Report Type: Spontaneous
  Country: US (occurrence: US)
  Receive Date: 20241016
  Receipt Date: 20241016
  Transmission Date: 20250114
  Serious: No
  Sender: SANOFI AVENTIS
  Company Number: US-SA-2024SA294816

PATIENT
  Age: 8 Year
  Sex: Male
  Weight: 44.09 kg

DRUGS (1)
  1. DUPIXENT [Suspect]
     Active Substance: DUPILUMAB
     Indication: Dermatitis atopic
     Dosage: 200 MG, QOW
     Route: 058
     Dates: start: 20240823, end: 20240920

REACTIONS (6)
  - Periorbital pain [Recovering/Resolving]
  - Periorbital swelling [Recovering/Resolving]
  - Discharge [Recovering/Resolving]
  - Skin laceration [Recovering/Resolving]
  - Ocular hyperaemia [Not Recovered/Not Resolved]
  - Eye inflammation [Recovering/Resolving]

NARRATIVE: CASE EVENT DATE: 20240906
